FAERS Safety Report 12232327 (Version 1)
Quarter: 2016Q2

REPORT INFORMATION
  Report Type: Spontaneous
  Country: FR (occurrence: FR)
  Receive Date: 20160401
  Receipt Date: 20160401
  Transmission Date: 20160815
  Serious: Yes (Death, Hospitalization, Other)
  Sender: FDA-Public Use
  Company Number: FR-BRISTOL-MYERS SQUIBB COMPANY-BMS-2016-024312

PATIENT
  Age: 49 Year
  Sex: Female

DRUGS (2)
  1. NIVOLUMAB [Suspect]
     Active Substance: NIVOLUMAB
     Indication: METASTATIC MALIGNANT MELANOMA
     Route: 065
  2. YERVOY [Suspect]
     Active Substance: IPILIMUMAB
     Indication: METASTATIC MALIGNANT MELANOMA
     Dosage: 3 MG/KG, UNK
     Route: 042
     Dates: start: 20160212, end: 20160326

REACTIONS (8)
  - Biopsy liver [Unknown]
  - Eosinophilia [Unknown]
  - Death [Fatal]
  - Intracranial pressure increased [Unknown]
  - Parasite stool test positive [Unknown]
  - Autoimmune hepatitis [Recovered/Resolved with Sequelae]
  - Hypothyroidism [Unknown]
  - Biliary cirrhosis primary [Unknown]

NARRATIVE: CASE EVENT DATE: 20150416
